FAERS Safety Report 7423582-4 (Version None)
Quarter: 2011Q2

REPORT INFORMATION
  Report Type: 
  Country: None (occurrence: None)
  Receive Date: 20110419
  Receipt Date: 20110412
  Transmission Date: 20111010
  Serious: Yes (Death, Hospitalization)
  Sender: FDA-Public Use
  Company Number: JP-AMGEN-JPNCT2010001683

PATIENT
  Age: 61 Year
  Sex: Male
  Weight: 56 kg

DRUGS (1)
  1. PANITUMUMAB [Suspect]
     Indication: COLORECTAL CANCER
     Dosage: 6 MG/KG, Q2WK
     Route: 041
     Dates: start: 20100720, end: 20100912

REACTIONS (13)
  - ALANINE AMINOTRANSFERASE INCREASED [None]
  - ASPARTATE AMINOTRANSFERASE INCREASED [None]
  - BLOOD BILIRUBIN INCREASED [None]
  - DEATH [None]
  - PRURITUS [None]
  - HYPOMAGNESAEMIA [None]
  - BLOOD ALKALINE PHOSPHATASE INCREASED [None]
  - ERYTHEMA [None]
  - HYPOKALAEMIA [None]
  - SKIN EXFOLIATION [None]
  - DRY SKIN [None]
  - DERMATITIS ACNEIFORM [None]
  - PARONYCHIA [None]
